FAERS Safety Report 24550753 (Version 6)
Quarter: 2025Q4

REPORT INFORMATION
  Report Type: Spontaneous
  Country: JP (occurrence: JP)
  Receive Date: 20241025
  Receipt Date: 20251125
  Transmission Date: 20260117
  Serious: Yes (Life-Threatening, Hospitalization, Other)
  Sender: JAZZ
  Company Number: JP-JAZZ PHARMACEUTICALS-2024-JP-001681

PATIENT
  Age: 2 Year
  Sex: Male
  Weight: 12.9 kg

DRUGS (21)
  1. DEFITELIO [Suspect]
     Active Substance: DEFIBROTIDE SODIUM
     Indication: Venoocclusive disease
     Dosage: 320 MILLIGRAM, QD (80 X 4 MG/DAY)
     Dates: start: 20231215, end: 20240115
  2. DEFITELIO [Suspect]
     Active Substance: DEFIBROTIDE SODIUM
     Indication: Venoocclusive liver disease
  3. GRANULOCYTE COLONY-STIMULATING FACTOR NOS [Suspect]
     Active Substance: GRANULOCYTE COLONY-STIMULATING FACTOR NOS
     Indication: Venoocclusive liver disease
     Dosage: UNK
  4. DEXAMETHASONE PALMITATE [Concomitant]
     Active Substance: DEXAMETHASONE PALMITATE
     Indication: Product used for unknown indication
     Dosage: 1.4 MILLIGRAM
     Dates: start: 20231222, end: 20241224
  5. MICAFUNGIN SODIUM [Concomitant]
     Active Substance: MICAFUNGIN SODIUM
     Indication: Infection prophylaxis
     Dosage: 12.5 MILLIGRAM
     Dates: start: 20231215, end: 20231224
  6. VEEN D [CALCIUM CHLORIDE;GLUCOSE;POTASSIUM CHLORIDE;SODIUM ACETATE;SOD [Concomitant]
     Indication: Fluid replacement
     Dosage: 1000 MILLILITER
     Dates: start: 20231215, end: 20231223
  7. VEEN D [CALCIUM CHLORIDE;GLUCOSE;POTASSIUM CHLORIDE;SODIUM ACETATE;SOD [Concomitant]
     Dosage: 1000 MILLILITER
     Dates: start: 20240101, end: 20240104
  8. DEXTROSE\SODIUM CHLORIDE\SODIUM LACTATE [Concomitant]
     Active Substance: DEXTROSE\SODIUM CHLORIDE\SODIUM LACTATE
     Indication: Fluid replacement
     Dosage: UNK
     Dates: start: 20231219, end: 20231220
  9. DEXTROSE\SODIUM CHLORIDE\SODIUM LACTATE [Concomitant]
     Active Substance: DEXTROSE\SODIUM CHLORIDE\SODIUM LACTATE
     Dosage: UNK
  10. NEUART [Concomitant]
     Active Substance: ANTITHROMBIN III HUMAN
     Indication: Antithrombin III
     Dosage: UNK
  11. THIAMYLAL SODIUM [Concomitant]
     Active Substance: THIAMYLAL SODIUM
     Indication: Sedation
     Dosage: 37.5 MILLIGRAM
     Dates: start: 20231222, end: 20231222
  12. FUROSEMIDE [Concomitant]
     Active Substance: FUROSEMIDE
     Indication: Oedema
     Dosage: UNK
     Dates: start: 20231215, end: 20240115
  13. SOLDEM 3A [Concomitant]
     Active Substance: CARBOHYDRATES\POTASSIUM CHLORIDE\SODIUM CHLORIDE\SODIUM LACTATE
     Indication: Fluid replacement
     Dosage: 500 MILLILITER
     Dates: start: 20231224, end: 20231225
  14. MIYA-BM [Concomitant]
     Active Substance: CLOSTRIDIUM BUTYRICUM SPORES STRAIN M-55
     Indication: Probiotic therapy
     Dosage: 1.2 GRAM
     Dates: start: 20231215, end: 20231215
  15. ACYCLOVIR [Concomitant]
     Active Substance: ACYCLOVIR
     Indication: Infection prophylaxis
     Dosage: UNK
  16. SULFAMETHOXAZOLE\TRIMETHOPRIM [Concomitant]
     Active Substance: SULFAMETHOXAZOLE\TRIMETHOPRIM
     Indication: Antifungal prophylaxis
     Dosage: UNK
  17. FLUCONAZOLE [Concomitant]
     Active Substance: FLUCONAZOLE
     Indication: Infection prophylaxis
     Dosage: 50 MILLIGRAM
     Dates: start: 20231225, end: 20240115
  18. TOLVAPTAN [Concomitant]
     Active Substance: TOLVAPTAN
     Indication: Oedema
     Dosage: 1.6 MILLIGRAM
     Dates: start: 20231227, end: 20240111
  19. ICOSAPENT ETHYL [Concomitant]
     Active Substance: ICOSAPENT ETHYL
     Indication: Venoocclusive liver disease
     Dosage: 900 MILLIGRAM
  20. URSO [Concomitant]
     Active Substance: URSODIOL
     Indication: Venoocclusive liver disease
     Dosage: UNK
  21. CANRENOATE POTASSIUM [Concomitant]
     Active Substance: CANRENOATE POTASSIUM
     Indication: Oedema
     Dosage: UNK
     Dates: start: 20231221, end: 20240113

REACTIONS (9)
  - Pulmonary alveolar haemorrhage [Recovered/Resolved]
  - Acute respiratory distress syndrome [Recovered/Resolved]
  - Fungal infection [Recovered/Resolved]
  - Infection [Recovered/Resolved]
  - Hypokalaemia [Recovered/Resolved]
  - Prothrombin time prolonged [Recovered/Resolved]
  - Insomnia [Unknown]
  - Hepatic function abnormal [Recovered/Resolved]
  - Hypophagia [Recovered/Resolved]

NARRATIVE: CASE EVENT DATE: 20231218
